FAERS Safety Report 19111453 (Version 2)
Quarter: 2021Q2

REPORT INFORMATION
  Report Type: Spontaneous
  Country: JP (occurrence: JP)
  Receive Date: 20210408
  Receipt Date: 20210430
  Transmission Date: 20210717
  Serious: Yes (Hospitalization, Other)
  Sender: FDA-Public Use
  Company Number: JP-SA-2021SA019218

PATIENT
  Age: 56 Year
  Sex: Female

DRUGS (7)
  1. INSULIN DEGLUDEC [Suspect]
     Active Substance: INSULIN DEGLUDEC
     Indication: SUICIDE ATTEMPT
     Dosage: 1800 IU, UNKNOWN FREQ. (LOWER ABDOMEN)
     Route: 058
  2. BROTIZOLAM [Suspect]
     Active Substance: BROTIZOLAM
     Indication: SUICIDE ATTEMPT
     Dosage: UNK UNK, UNKNOWN FREQ.
     Route: 065
  3. ZOLPIDEM TARTRATE. [Suspect]
     Active Substance: ZOLPIDEM TARTRATE
     Indication: SUICIDE ATTEMPT
     Dosage: UNK UNK, UNKNOWN FREQ.
     Route: 065
  4. INSULIN ASPART [Suspect]
     Active Substance: INSULIN ASPART
     Indication: SUICIDE ATTEMPT
     Dosage: 1800 IU, UNKNOWN FREQ. (LOWER ABDOMEN)
     Route: 058
  5. CLONAZEPAM. [Suspect]
     Active Substance: CLONAZEPAM
     Indication: SUICIDE ATTEMPT
     Dosage: 1800 IU, UNKNOWN FREQ. (LOWER ABDOMEN)
     Route: 065
  6. FLUNIWIN [FLUNITRAZEPAM] [Suspect]
     Active Substance: FLUNITRAZEPAM
     Indication: SUICIDE ATTEMPT
     Dosage: UNK UNK, UNKNOWN FREQ.
     Route: 065
  7. TRAZODONE HYDROCHLORIDE. [Suspect]
     Active Substance: TRAZODONE HYDROCHLORIDE
     Indication: COMPLETED SUICIDE
     Dosage: 1800 IU, UNKNOWN FREQ. (LOWER ABDOMEN)
     Route: 065

REACTIONS (6)
  - Hypoglycaemia [Recovering/Resolving]
  - Altered state of consciousness [Recovering/Resolving]
  - Intentional overdose [Recovering/Resolving]
  - Glossoptosis [Recovering/Resolving]
  - Pneumonia aspiration [Recovering/Resolving]
  - Coma [Recovering/Resolving]
